FAERS Safety Report 25473096 (Version 2)
Quarter: 2025Q4

REPORT INFORMATION
  Report Type: Report from Study
  Country: US (occurrence: US)
  Receive Date: 20250624
  Receipt Date: 20251027
  Transmission Date: 20260118
  Serious: Yes (Hospitalization, Other)
  Sender: ABBVIE
  Company Number: US-ABBVIE-6337403

PATIENT
  Age: 49 Year
  Sex: Male

DRUGS (4)
  1. SKYRIZI [Suspect]
     Active Substance: RISANKIZUMAB-RZAA
     Indication: Psoriatic arthropathy
     Dosage: STRENGTH: 150 MG/ML, WEEK 0
     Route: 058
     Dates: start: 20250403, end: 20250403
  2. SKYRIZI [Suspect]
     Active Substance: RISANKIZUMAB-RZAA
     Indication: Psoriasis
     Dosage: STRENGTH: 150 MG/ML, WEEK 4
     Route: 058
     Dates: start: 202505, end: 202505
  3. SKYRIZI [Suspect]
     Active Substance: RISANKIZUMAB-RZAA
     Dosage: STRENGTH: 150 MG/ML?START DATE: 2025
     Route: 058
  4. OTEZLA [Concomitant]
     Active Substance: APREMILAST
     Indication: Product used for unknown indication

REACTIONS (6)
  - Fall [Unknown]
  - Constipation [Recovering/Resolving]
  - Grip strength decreased [Not Recovered/Not Resolved]
  - Peripheral arterial occlusive disease [Unknown]
  - Upper limb fracture [Unknown]
  - Mobility decreased [Not Recovered/Not Resolved]

NARRATIVE: CASE EVENT DATE: 20250101
